FAERS Safety Report 15334262 (Version 3)
Quarter: 2018Q3

REPORT INFORMATION
  Report Type: Spontaneous
  Country: US (occurrence: US)
  Receive Date: 20180830
  Receipt Date: 20180928
  Transmission Date: 20181010
  Serious: No
  Sender: FDA-Public Use
  Company Number: US-PFIZER INC-2018346681

PATIENT
  Age: 65 Year
  Sex: Female

DRUGS (2)
  1. REVATIO [Suspect]
     Active Substance: SILDENAFIL CITRATE
     Dosage: 40 MG, 3X/DAY(TWO 20MG TABLETS BY MOUTH THREE TIMES A DAY)(2 IN MORNING 2 IN AFTERNOON,2 IN EVENING)
     Route: 048
  2. REVATIO [Suspect]
     Active Substance: SILDENAFIL CITRATE
     Dosage: 20 MG, 2 IN THE MORNING, 2 IN THE AFTERNOON AND 2 IN THE EVENING

REACTIONS (2)
  - Prescribed overdose [Unknown]
  - Dyspnoea exertional [Unknown]

NARRATIVE: CASE EVENT DATE: 20180824
